FAERS Safety Report 7973747-8 (Version None)
Quarter: 2011Q4

REPORT INFORMATION
  Report Type: 
  Country: None (occurrence: None)
  Receive Date: 20111213
  Receipt Date: 20111202
  Transmission Date: 20120403
  Serious: Yes (Hospitalization, Other)
  Sender: FDA-Public Use
  Company Number: US-ROCHE-1015136

PATIENT
  Sex: Female
  Weight: 77.18 kg

DRUGS (8)
  1. PAIN MEDICATION NOS [Concomitant]
  2. XELODA [Suspect]
     Indication: PANCREATIC CARCINOMA
     Route: 048
     Dates: start: 20110301, end: 20110911
  3. CHEMOTHERAPY NOS [Concomitant]
     Route: 042
  4. INSULIN PUMP [Concomitant]
  5. LEVOTHYROXINE SODIUM [Concomitant]
  6. CORADUR [Concomitant]
  7. MALTASE [Concomitant]
  8. LOMOTIL [Concomitant]

REACTIONS (5)
  - OEDEMA PERIPHERAL [None]
  - THROMBOSIS [None]
  - DIARRHOEA [None]
  - GENERALISED OEDEMA [None]
  - PYREXIA [None]
